FAERS Safety Report 6062029-X (Version None)
Quarter: 2009Q1

REPORT INFORMATION
  Report Type: 
  Country: None (occurrence: None)
  Receive Date: 20090202
  Receipt Date: 20090129
  Transmission Date: 20090719
  Serious: Yes (Hospitalization, Other)
  Sender: FDA-Public Use
  Company Number: US-B.I. PHARMACEUTICALS,INC./RIDGEFIELD-2009-DE-01026GD

PATIENT
  Age: 61 Year
  Sex: Male

DRUGS (5)
  1. PERSANTINE [Suspect]
     Indication: THROMBOSIS PROPHYLAXIS
     Dosage: 225MG
  2. ASPIRIN [Suspect]
     Indication: THROMBOSIS PROPHYLAXIS
     Dosage: 81MG
  3. WARFARIN SODIUM [Suspect]
     Indication: THROMBOSIS PROPHYLAXIS
     Dosage: 4MG
  4. INTEGRILIN [Suspect]
     Indication: THROMBOSIS IN DEVICE
     Dosage: 2 MCG/KG/MIN
  5. HEPARIN [Suspect]
     Indication: THROMBOSIS IN DEVICE

REACTIONS (5)
  - BLOOD CREATININE INCREASED [None]
  - DRUG INEFFECTIVE [None]
  - HAEMOLYSIS [None]
  - THROMBOCYTOPENIA [None]
  - THROMBOSIS IN DEVICE [None]
